FAERS Safety Report 20922030 (Version 5)
Quarter: 2023Q2

REPORT INFORMATION
  Report Type: Other
  Country: JP (occurrence: JP)
  Receive Date: 20220607
  Receipt Date: 20230609
  Transmission Date: 20230722
  Serious: Yes (Other)
  Sender: FDA-Public Use
  Company Number: JP-CHUGAI-2022020271

PATIENT
  Age: 57 Year
  Sex: Male
  Weight: 63.3 kg

DRUGS (15)
  1. ATEZOLIZUMAB [Suspect]
     Active Substance: ATEZOLIZUMAB
     Indication: Lung adenocarcinoma
     Route: 041
     Dates: start: 20220207, end: 20220207
  2. ATEZOLIZUMAB [Suspect]
     Active Substance: ATEZOLIZUMAB
     Route: 041
     Dates: start: 20220307, end: 20220307
  3. ATEZOLIZUMAB [Suspect]
     Active Substance: ATEZOLIZUMAB
     Route: 041
     Dates: start: 20220404, end: 20220425
  4. ATEZOLIZUMAB [Suspect]
     Active Substance: ATEZOLIZUMAB
     Route: 041
     Dates: end: 20220517
  5. ATEZOLIZUMAB [Suspect]
     Active Substance: ATEZOLIZUMAB
     Route: 041
     Dates: start: 20220621, end: 20220621
  6. BEVACIZUMAB [Suspect]
     Active Substance: BEVACIZUMAB
     Indication: Lung adenocarcinoma
     Route: 041
     Dates: start: 20220207, end: 20220207
  7. BEVACIZUMAB [Suspect]
     Active Substance: BEVACIZUMAB
     Route: 041
     Dates: start: 20220307, end: 20220307
  8. BEVACIZUMAB [Suspect]
     Active Substance: BEVACIZUMAB
     Route: 041
     Dates: start: 20220404, end: 20220425
  9. BEVACIZUMAB [Suspect]
     Active Substance: BEVACIZUMAB
     Route: 041
     Dates: start: 20220621, end: 20220621
  10. BEVACIZUMAB [Suspect]
     Active Substance: BEVACIZUMAB
     Route: 041
     Dates: end: 20220517
  11. PACLITAXEL [Suspect]
     Active Substance: PACLITAXEL
     Indication: Lung adenocarcinoma
     Route: 041
     Dates: start: 20220207, end: 20220207
  12. PACLITAXEL [Suspect]
     Active Substance: PACLITAXEL
     Route: 041
     Dates: start: 20220307, end: 20220307
  13. PACLITAXEL [Suspect]
     Active Substance: PACLITAXEL
     Dosage: ON 25/APR/2022, HE RECEIVED MOST RECENT DOSE OF PACLITAXEL.
     Route: 041
     Dates: start: 20220404
  14. CARBOPLATIN [Concomitant]
     Active Substance: CARBOPLATIN
     Indication: Lung adenocarcinoma
     Dosage: 530 MILLIGRAM, ONCE/4WEEKS
     Route: 041
     Dates: start: 20220207, end: 20220307
  15. CARBOPLATIN [Concomitant]
     Active Substance: CARBOPLATIN
     Dosage: 490 MILLIGRAM, ONCE/3WEEKS
     Route: 041
     Dates: start: 20220404

REACTIONS (3)
  - Drug-induced liver injury [Recovered/Resolved]
  - Colitis [Recovered/Resolved]
  - Neuropathy peripheral [Recovering/Resolving]

NARRATIVE: CASE EVENT DATE: 20220224
